FAERS Safety Report 18377625 (Version 16)
Quarter: 2022Q3

REPORT INFORMATION
  Report Type: Spontaneous
  Country: US (occurrence: US)
  Receive Date: 20201013
  Receipt Date: 20220829
  Transmission Date: 20221027
  Serious: No
  Sender: FDA-Public Use
  Company Number: US-GLAXOSMITHKLINE-US2020AMR202094

PATIENT
  Age: 54 Year
  Sex: Female

DRUGS (16)
  1. ZEJULA [Suspect]
     Active Substance: NIRAPARIB
     Indication: Ovarian cancer
     Dosage: 200 MG, QD
     Dates: start: 20200916
  2. ZEJULA [Suspect]
     Active Substance: NIRAPARIB
     Dosage: 200 MG, QD
  3. ZEJULA [Suspect]
     Active Substance: NIRAPARIB
     Dosage: 100 MG
     Dates: end: 20201217
  4. ZEJULA [Suspect]
     Active Substance: NIRAPARIB
     Dosage: 200 MG, QD
  5. ZEJULA [Suspect]
     Active Substance: NIRAPARIB
     Dosage: 100 MG, QD
  6. ZEJULA [Suspect]
     Active Substance: NIRAPARIB
     Dosage: 100 MG, QD
     Route: 048
     Dates: start: 202101
  7. ZEJULA [Suspect]
     Active Substance: NIRAPARIB
     Dosage: 100 MG, QD (AM WITH FOOD)
     Dates: start: 20220401
  8. ZEJULA [Suspect]
     Active Substance: NIRAPARIB
     Dosage: 100 MG, QD
  9. ZEJULA [Suspect]
     Active Substance: NIRAPARIB
     Dosage: 100 MG, QOD (WITH FOOD)
     Dates: start: 20220801
  10. REQUIP [Concomitant]
     Active Substance: ROPINIROLE HYDROCHLORIDE
     Indication: Product used for unknown indication
     Dosage: UNK
  11. IMODIUM AD [Concomitant]
     Active Substance: LOPERAMIDE HYDROCHLORIDE
     Indication: Diarrhoea
     Dosage: 02 MG, PRN
  12. NEXIUM [Concomitant]
     Active Substance: ESOMEPRAZOLE MAGNESIUM
     Indication: Dyspepsia
     Dosage: 40 MG, QD
  13. ATIVAN [Concomitant]
     Active Substance: LORAZEPAM
     Indication: Product used for unknown indication
     Dosage: 1 MG, (PRN)
     Route: 048
  14. CYMBALTA [Concomitant]
     Active Substance: DULOXETINE HYDROCHLORIDE
     Indication: Product used for unknown indication
     Dosage: 30 MG, QD
  15. PROMETHAZINE HYDROCHLORIDE [Concomitant]
     Active Substance: PROMETHAZINE HYDROCHLORIDE
     Indication: Product used for unknown indication
     Dosage: 25 MG, PRN
  16. ONDANSETRON [Concomitant]
     Active Substance: ONDANSETRON
     Indication: Product used for unknown indication
     Dosage: 4 MG, PRN

REACTIONS (19)
  - Dizziness [Not Recovered/Not Resolved]
  - Headache [Not Recovered/Not Resolved]
  - Depression [Unknown]
  - Dyspepsia [Unknown]
  - Diarrhoea [Not Recovered/Not Resolved]
  - Anaemia [Recovered/Resolved]
  - Asthenia [Not Recovered/Not Resolved]
  - Fatigue [Recovered/Resolved]
  - Nausea [Not Recovered/Not Resolved]
  - Gallbladder operation [Unknown]
  - Constipation [Not Recovered/Not Resolved]
  - Fluid intake reduced [Unknown]
  - Weight increased [Not Recovered/Not Resolved]
  - Vomiting [Not Recovered/Not Resolved]
  - Full blood count abnormal [Unknown]
  - Incorrect dose administered [Unknown]
  - Product dose omission in error [Recovered/Resolved]
  - Extra dose administered [Unknown]
  - Off label use [Unknown]

NARRATIVE: CASE EVENT DATE: 20220801
